FAERS Safety Report 5748384-6 (Version None)
Quarter: 2008Q2

REPORT INFORMATION
  Report Type: 
  Country: None (occurrence: None)
  Receive Date: 20080523
  Receipt Date: 20080516
  Transmission Date: 20081010
  Serious: Yes (Disabling, Other)
  Sender: FDA-Public Use
  Company Number: US-PFIZER INC-2008034795

PATIENT
  Sex: Female

DRUGS (3)
  1. XANAX [Suspect]
     Indication: ANXIETY
  2. NORVASC [Suspect]
  3. LYRICA [Concomitant]

REACTIONS (8)
  - CERVIX CARCINOMA [None]
  - COMPRESSION FRACTURE [None]
  - FALL [None]
  - FIBROMYALGIA [None]
  - LYMPHADENECTOMY [None]
  - LYMPHOEDEMA [None]
  - RAYNAUD'S PHENOMENON [None]
  - VULVAL CANCER [None]
